FAERS Safety Report 6792349 (Version 4)
Quarter: 2020Q3

REPORT INFORMATION
  Report Type: Report from Study
  Country: US (occurrence: US)
  Receive Date: 20081021
  Receipt Date: 20090918
  Transmission Date: 20201105
  Serious: Yes (Death, Hospitalization, Other)
  Sender: FDA-Public Use
  Company Number: US-ROCHE-591132

PATIENT
  Age: 93 Year
  Sex: Female

DRUGS (1)
  1. IBANDRONIC ACID. [Suspect]
     Active Substance: IBANDRONIC ACID
     Indication: OSTEOPOROSIS
     Route: 048
     Dates: start: 200707

REACTIONS (4)
  - Hip fracture [Unknown]
  - Dementia [Not Recovered/Not Resolved]
  - Bacterial infection [Fatal]
  - Streptococcal bacteraemia [Fatal]

NARRATIVE: CASE EVENT DATE: 20090501
